FAERS Safety Report 25737388 (Version 1)
Quarter: 2025Q3

REPORT INFORMATION
  Report Type: Spontaneous
  Country: US (occurrence: US)
  Receive Date: 20250828
  Receipt Date: 20250828
  Transmission Date: 20251020
  Serious: No
  Sender: PHARMALEX US CORPORATION
  Company Number: US-PharmaLex US Corporation-2183418

PATIENT
  Sex: Male

DRUGS (1)
  1. CYTALUX [Suspect]
     Active Substance: PAFOLACIANINE SODIUM
     Indication: Metastases to lung

REACTIONS (7)
  - Nausea [Unknown]
  - Flushing [Unknown]
  - Urinary incontinence [Unknown]
  - Anal incontinence [Unknown]
  - Hypotension [Unknown]
  - Hyporesponsive to stimuli [Unknown]
  - Vomiting [Unknown]
